FAERS Safety Report 8911268 (Version 1)
Quarter: 2012Q4

REPORT INFORMATION
  Report Type: 
  Country: BE (occurrence: BE)
  Receive Date: 20121116
  Receipt Date: 20121116
  Transmission Date: 20130627
  Serious: Yes (Other)
  Sender: FDA-Public Use
  Company Number: BE-NOVOPROD-363799

PATIENT
  Age: 73 Year
  Sex: Male
  Weight: 47 kg

DRUGS (3)
  1. ACTRAPID [Suspect]
     Indication: TYPE 2 DIABETES MELLITUS
     Dosage: UNKNOWN
     Route: 042
     Dates: start: 20121105, end: 20121105
  2. MIXTARD 10 [Concomitant]
     Indication: TYPE 2 DIABETES MELLITUS
     Dosage: 13 U, bid (10+3)
     Route: 065
     Dates: start: 2002, end: 200704
  3. INSULATARD HM PENFILL [Concomitant]
     Indication: TYPE 2 DIABETES MELLITUS
     Dosage: 13 U, bid (9+4)
     Route: 065
     Dates: start: 200704

REACTIONS (1)
  - Rash [Recovered/Resolved]
